FAERS Safety Report 4867263-X (Version None)
Quarter: 2005Q4

REPORT INFORMATION
  Report Type: 
  Country: None (occurrence: None)
  Receive Date: 20051227
  Receipt Date: 20051227
  Transmission Date: 20060501
  Serious: Yes (Life-Threatening)
  Sender: FDA-Public Use
  Company Number: None

PATIENT
  Age: 52 Year
  Sex: Male

DRUGS (1)
  1. HURRICAINE SPRAY [Suspect]
     Dosage: TOPICAL
     Route: 061

REACTIONS (2)
  - METHAEMOGLOBINAEMIA [None]
  - SKIN DISCOLOURATION [None]
